FAERS Safety Report 5401996-1 (Version None)
Quarter: 2007Q3

REPORT INFORMATION
  Report Type: 
  Country: None (occurrence: None)
  Receive Date: 20070727
  Receipt Date: 20070718
  Transmission Date: 20080115
  Serious: Yes (Life-Threatening, Hospitalization, Other)
  Sender: FDA-Public Use
  Company Number: A-CH2005-10612

PATIENT
  Age: 7 Year
  Sex: Female
  Weight: 16.9 kg

DRUGS (5)
  1. ZAVESCA [Suspect]
     Indication: GAUCHER'S DISEASE
     Dosage: 100 MG, BID, ORAL
     Route: 048
     Dates: start: 20040705, end: 20070718
  2. CITALOPRAM HYDROBROMIDE [Concomitant]
  3. CHLORPHENIRAMINE MALEATE [Concomitant]
  4. IMODIUM [Concomitant]
  5. GLYCOPYRROLATE [Concomitant]

REACTIONS (20)
  - COGNITIVE DISORDER [None]
  - CONVULSION [None]
  - COUGH [None]
  - DEVICE OCCLUSION [None]
  - DIARRHOEA [None]
  - DISEASE PROGRESSION [None]
  - DYSPHAGIA [None]
  - GENERAL PHYSICAL HEALTH DETERIORATION [None]
  - LOWER RESPIRATORY TRACT INFECTION [None]
  - MECHANICAL VENTILATION [None]
  - NAUSEA [None]
  - NEUROLOGICAL SYMPTOM [None]
  - NIEMANN-PICK DISEASE [None]
  - PYREXIA [None]
  - RASH [None]
  - TREMOR [None]
  - VIRAL INFECTION [None]
  - VOCAL CORD PARESIS [None]
  - VOMITING [None]
  - WEIGHT DECREASED [None]
